FAERS Safety Report 21929228 (Version 1)
Quarter: 2023Q1

REPORT INFORMATION
  Report Type: Spontaneous
  Country: US (occurrence: US)
  Receive Date: 20230131
  Receipt Date: 20230131
  Transmission Date: 20230418
  Serious: No
  Sender: FDA-Public Use
  Company Number: US-JNJFOC-20230147643

PATIENT

DRUGS (1)
  1. SPRAVATO [Suspect]
     Active Substance: ESKETAMINE
     Indication: Product used for unknown indication

REACTIONS (5)
  - Hot flush [Unknown]
  - Motion sickness [Unknown]
  - Feeling drunk [Unknown]
  - Dizziness [Unknown]
  - Anxiety [Unknown]
